FAERS Safety Report 4941655-2 (Version None)
Quarter: 2006Q1

REPORT INFORMATION
  Report Type: 
  Country: None (occurrence: None)
  Receive Date: 20060313
  Receipt Date: 20060207
  Transmission Date: 20060701
  Serious: Yes (Other)
  Sender: FDA-Public Use
  Company Number: JP-ROCHE-436160

PATIENT
  Age: 5 Year
  Sex: Female
  Weight: 17 kg

DRUGS (6)
  1. TAMIFLU [Suspect]
     Route: 048
     Dates: start: 20060206, end: 20060206
  2. ASVERIN [Concomitant]
     Route: 048
     Dates: start: 20060206, end: 20060218
  3. MUCODYNE [Concomitant]
     Route: 048
     Dates: start: 20060206, end: 20060218
  4. PERIACTIN [Concomitant]
     Route: 048
     Dates: start: 20060206, end: 20060218
  5. MUCOSAL [Concomitant]
     Route: 048
     Dates: start: 20060206, end: 20060218
  6. HOKUNALIN [Concomitant]
     Dosage: DOSE FORM: TAPE
     Route: 061
     Dates: start: 20060206, end: 20060218

REACTIONS (3)
  - ABNORMAL BEHAVIOUR [None]
  - DELIRIUM [None]
  - HALLUCINATION, VISUAL [None]
